FAERS Safety Report 14427446 (Version 1)
Quarter: 2018Q1

REPORT INFORMATION
  Report Type: Spontaneous
  Country: CL (occurrence: CL)
  Receive Date: 20180123
  Receipt Date: 20180123
  Transmission Date: 20180509
  Serious: Yes (Other)
  Sender: FDA-Public Use
  Company Number: CL-TEVA-2018-CL-848186

PATIENT
  Age: 37 Year
  Sex: Female
  Weight: 103 kg

DRUGS (1)
  1. SENTIS (PHENTERMINE) [Suspect]
     Active Substance: PHENTERMINE
     Indication: OVERWEIGHT
     Dosage: 37.5 MILLIGRAM DAILY;
     Route: 048
     Dates: start: 20171223

REACTIONS (6)
  - Haemorrhoids [Not Recovered/Not Resolved]
  - Hypertension [Not Recovered/Not Resolved]
  - Fear [Not Recovered/Not Resolved]
  - Palpitations [Not Recovered/Not Resolved]
  - Rectal haemorrhage [Not Recovered/Not Resolved]
  - Anxiety [Not Recovered/Not Resolved]

NARRATIVE: CASE EVENT DATE: 20180101
